FAERS Safety Report 18371965 (Version 1)
Quarter: 2020Q4

REPORT INFORMATION
  Report Type: Spontaneous
  Country: AT (occurrence: AT)
  Receive Date: 20201012
  Receipt Date: 20201012
  Transmission Date: 20210114
  Serious: Yes (Other)
  Sender: FDA-Public Use
  Company Number: AT-TEVA-2020-AT-1837932

PATIENT
  Age: 76 Year
  Sex: Male
  Weight: 65 kg

DRUGS (1)
  1. DICLOBENE RETARD [Suspect]
     Active Substance: DICLOFENAC SODIUM
     Dosage: 2 DOSAGE FORMS DAILY; 1 DOSAGE FORM= 1 TABLET
     Route: 065
     Dates: start: 202006

REACTIONS (1)
  - Renal impairment [Not Recovered/Not Resolved]

NARRATIVE: CASE EVENT DATE: 202006
